FAERS Safety Report 8111165-2 (Version None)
Quarter: 2012Q1

REPORT INFORMATION
  Report Type: 
  Country: None (occurrence: None)
  Receive Date: 20120203
  Receipt Date: 20110525
  Transmission Date: 20120608
  Serious: No
  Sender: FDA-Public Use
  Company Number: US-GLAXOSMITHKLINE-A0929135A

PATIENT
  Age: 37 Year
  Sex: Female

DRUGS (5)
  1. PRILOSEC [Concomitant]
  2. SUPPLEMENT [Concomitant]
  3. MIRAPEX [Concomitant]
  4. VITAMIN TAB [Concomitant]
  5. LAMICTAL [Suspect]
     Indication: AFFECTIVE DISORDER
     Dosage: 25MG PER DAY
     Route: 048
     Dates: start: 20110521

REACTIONS (1)
  - RASH [None]
